FAERS Safety Report 23098855 (Version 1)
Quarter: 2023Q4

REPORT INFORMATION
  Report Type: Other
  Country: US (occurrence: None)
  Receive Date: 20231024
  Receipt Date: 20231024
  Transmission Date: 20240109
  Serious: No
  Sender: FDA-Public Use
  Company Number: US-ROCHE-3441962

PATIENT
  Age: 67 Year
  Sex: Female
  Weight: 81.6 kg

DRUGS (11)
  1. OCREVUS [Suspect]
     Active Substance: OCRELIZUMAB
     Indication: Relapsing multiple sclerosis
     Dosage: 300MG/10 ML?LAST DOSE OF OCREVUS ON 06/JAN/2023.?600 MG INTO VEIN EVERY 6 MONTHS.
     Route: 042
     Dates: start: 201904
  2. SODIUM CHLORIDE [Concomitant]
     Active Substance: SODIUM CHLORIDE
     Route: 042
  3. PEPCID [Concomitant]
     Active Substance: FAMOTIDINE
     Route: 050
  4. FERROUS SULFATE [Concomitant]
     Active Substance: FERROUS SULFATE
     Route: 048
  5. LIORESAL [Concomitant]
     Active Substance: BACLOFEN
     Dosage: BEDTIME
  6. WELLBUTRIN XL [Concomitant]
     Active Substance: BUPROPION HYDROCHLORIDE
  7. ZOLOFT [Concomitant]
     Active Substance: SERTRALINE HYDROCHLORIDE
  8. ZANAFLEX [Concomitant]
     Active Substance: TIZANIDINE HYDROCHLORIDE
     Dosage: BED TIME
     Route: 048
  9. TYLENOL [Concomitant]
     Active Substance: ACETAMINOPHEN
     Route: 048
  10. ASPIRIN [Concomitant]
     Active Substance: ASPIRIN
     Route: 048
  11. CHOLECALCIFEROL [Concomitant]
     Active Substance: CHOLECALCIFEROL

REACTIONS (16)
  - Lymphopenia [Unknown]
  - Memory impairment [Unknown]
  - Dysphagia [Unknown]
  - Asthenia [Unknown]
  - Coordination abnormal [Unknown]
  - Fall [Unknown]
  - Bladder dysfunction [Unknown]
  - Off label use [Unknown]
  - Full blood count abnormal [Unknown]
  - Immunoglobulins abnormal [Unknown]
  - Haematocrit decreased [Unknown]
  - COVID-19 [Unknown]
  - Depression [Unknown]
  - Erythema [Unknown]
  - Peroneal nerve palsy [Unknown]
  - Muscular weakness [Unknown]

NARRATIVE: CASE EVENT DATE: 20230601
